FAERS Safety Report 7916929 (Version 2)
Quarter: 2013Q1

REPORT INFORMATION
  Report Type: Spontaneous
  Country: US (occurrence: US)
  Receive Date: 20110427
  Receipt Date: 20130108
  Transmission Date: 20140127
  Serious: Yes (Other)
  Sender: FDA-Public Use
  Company Number: PHHY2011US32114

PATIENT
  Age: 73 Year
  Sex: Male

DRUGS (11)
  1. SIMVASTATIN [Suspect]
     Dosage: 80 MG DAILY
  2. SIMVASTATIN [Interacting]
     Dosage: 40 MG, DAILY
  3. SIMVASTATIN [Interacting]
     Dosage: 80 MG, DAILY
  4. AZITHROMYCIN [Interacting]
     Indication: BRONCHITIS
     Dosage: 500 MG, UNK
     Route: 048
  5. AZITHROMYCIN [Interacting]
     Dosage: 250 MG, UNK
     Route: 048
  6. ALLOPURINOL [Concomitant]
     Dosage: 100 MG,DAILY
  7. PREDNISONE [Concomitant]
     Dosage: 5 MG DAILY
  8. LABETALOL [Concomitant]
     Dosage: UNK UKN, UNK
  9. BUMETANIDE [Concomitant]
     Dosage: UNK UKN, UNK
  10. AMLODIPINE [Concomitant]
  11. INSULIN GLARGINE [Concomitant]

REACTIONS (6)
  - Rhabdomyolysis [Recovered/Resolved]
  - Pain in extremity [Recovered/Resolved]
  - Blood creatine phosphokinase increased [Recovered/Resolved]
  - Muscular weakness [Recovered/Resolved]
  - Renal failure acute [Unknown]
  - Drug interaction [Unknown]
